FAERS Safety Report 25970784 (Version 5)
Quarter: 2025Q4

REPORT INFORMATION
  Report Type: Report from Study
  Country: CA (occurrence: CA)
  Receive Date: 20251028
  Receipt Date: 20251205
  Transmission Date: 20260117
  Serious: Yes (Hospitalization, Other)
  Sender: IPSEN BIOPHARMACEUTICALS, INC.
  Company Number: CA-IPSEN Group, Research and Development-2025-26532

PATIENT
  Age: 87 Year
  Sex: Male

DRUGS (17)
  1. LANREOTIDE ACETATE [Suspect]
     Active Substance: LANREOTIDE ACETATE
     Indication: Gastroenteropancreatic neuroendocrine tumour disease
     Dosage: 120 MG Q 4 WEEKS DEEP-SC
     Route: 058
     Dates: start: 20241024
  2. LANREOTIDE ACETATE [Suspect]
     Active Substance: LANREOTIDE ACETATE
     Dosage: 120 MG Q 4 WEEKS DEEP-SC
     Route: 058
     Dates: start: 20250925
  3. SERTRALINE [Concomitant]
     Active Substance: SERTRALINE HYDROCHLORIDE
     Dosage: 25 MG 1 CO DIE
  4. SYNTHROID [Concomitant]
     Active Substance: LEVOTHYROXINE SODIUM
     Dosage: 75 MCG AND 75 MG 1 CO DIE IN ALTERNANCE
  5. JARDIANCE [Concomitant]
     Active Substance: EMPAGLIFLOZIN
     Dosage: JARDIANCE 25 MG 2 CO DIE
  6. PANTOPRAZOLE [Concomitant]
     Active Substance: PANTOPRAZOLE
     Dosage: 40 MG 1 CO DIE
  7. RAMIPRIL [Concomitant]
     Active Substance: RAMIPRIL
     Dosage: 10 MG 2 CO BID,
  8. BISOPROLOL [Concomitant]
     Active Substance: BISOPROLOL
     Dosage: 1.25 MG 1 CO DIE
  9. ATORVASTATIN [Concomitant]
     Active Substance: ATORVASTATIN
     Dosage: 80 MG / CO DIE
  10. ASPIRIN [Concomitant]
     Active Substance: ASPIRIN
     Dosage: ASAPHEN E.C 1 CO DIE
  11. AMLODIPINE [Concomitant]
     Active Substance: AMLODIPINE BESYLATE
     Dosage: 10 MG 1 CO HS
  12. SITAGLIPTIN [Concomitant]
     Active Substance: SITAGLIPTIN
     Dosage: 100 MG 1 CO DIE
  13. METFORMIN [Concomitant]
     Active Substance: METFORMIN HYDROCHLORIDE
     Dosage: 500 MG 2 CO DIE
  14. Apo Dutasteride [Concomitant]
     Dosage: 0.5 MG 1 CO DIE
  15. FUROSEMIDE [Concomitant]
     Active Substance: FUROSEMIDE
     Dosage: 40 MG
  16. GLICLAZIDE [Concomitant]
     Active Substance: GLICLAZIDE
     Dosage: 30 MG 1 CO DIE
  17. M B 12 [Concomitant]
     Dosage: 1000 MCG 1 CO DIE

REACTIONS (10)
  - Cardiac failure [Unknown]
  - Pericardial effusion [Unknown]
  - Terminal state [Unknown]
  - Abdominal distension [Unknown]
  - Peripheral swelling [Unknown]
  - Blood pressure abnormal [Unknown]
  - Fatigue [Unknown]
  - Dyspnoea [Recovered/Resolved]
  - Abdominal pain upper [Recovered/Resolved]
  - General physical health deterioration [Not Recovered/Not Resolved]

NARRATIVE: CASE EVENT DATE: 20250101
